FAERS Safety Report 4887455-3 (Version None)
Quarter: 2006Q1

REPORT INFORMATION
  Report Type: 
  Country: None (occurrence: None)
  Receive Date: 20060118
  Receipt Date: 20060110
  Transmission Date: 20060701
  Serious: Yes (Life-Threatening, Hospitalization, Disabling)
  Sender: FDA-Public Use
  Company Number: HQWYE236125OCT05

PATIENT
  Age: 55 Year
  Sex: Female

DRUGS (11)
  1. MYLOTARG [Suspect]
     Indication: ACUTE MYELOID LEUKAEMIA RECURRENT
     Dosage: SEE IMAGE
     Route: 041
     Dates: start: 20050924, end: 20050924
  2. MYLOTARG [Suspect]
     Indication: ACUTE MYELOID LEUKAEMIA RECURRENT
     Dosage: SEE IMAGE
     Route: 041
     Dates: start: 20051008, end: 20051008
  3. CARBENIN (BETAMIPRON/PANIPENEM) [Concomitant]
  4. MAXIPIME [Concomitant]
  5. AMIKACIN SULFATE [Concomitant]
  6. PRODIF (POSFLUCONAZOLE) [Concomitant]
  7. ALBUMIN (HUMAN) [Concomitant]
  8. ANTITROMBIN III (ANTITROMBIN III) [Concomitant]
  9. FOY (GABEXATE MESILATE) [Concomitant]
  10. FRAGMIN [Concomitant]
  11. FUNGUARD (MICAFUNGIN SODIUM) [Concomitant]

REACTIONS (4)
  - BLOOD CREATININE INCREASED [None]
  - DISEASE PROGRESSION [None]
  - SEPSIS [None]
  - VENOOCCLUSIVE LIVER DISEASE [None]
